FAERS Safety Report 26130862 (Version 2)
Quarter: 2025Q4

REPORT INFORMATION
  Report Type: Report from Study
  Country: US (occurrence: US)
  Receive Date: 20251208
  Receipt Date: 20251223
  Transmission Date: 20260118
  Serious: Yes (Other)
  Sender: MALLINCKRODT
  Company Number: US-MALLINCKRODT-MNK202507710

PATIENT
  Age: 40 Year
  Sex: Female

DRUGS (2)
  1. CORTICOTROPIN [Suspect]
     Active Substance: CORTICOTROPIN
     Indication: Psoriatic arthropathy
     Dosage: 80 UNITS
     Route: 058
     Dates: start: 20251121
  2. TREMFYA [Concomitant]
     Active Substance: GUSELKUMAB
     Dosage: UNKNOWN

REACTIONS (5)
  - Carpal tunnel syndrome [Not Recovered/Not Resolved]
  - Vaginal discharge [Unknown]
  - Injection site pain [Unknown]
  - Injection site discharge [Not Recovered/Not Resolved]
  - Insomnia [Not Recovered/Not Resolved]

NARRATIVE: CASE EVENT DATE: 20250101
